FAERS Safety Report 10970196 (Version 1)
Quarter: 2015Q1

REPORT INFORMATION
  Report Type: Spontaneous
  Country: US (occurrence: None)
  Receive Date: 20150330
  Receipt Date: 20150330
  Transmission Date: 20150721
  Serious: Yes (Other)
  Sender: FDA-Public Use
  Company Number: None

PATIENT
  Age: 43 Year
  Sex: Female
  Weight: 63.5 kg

DRUGS (2)
  1. MULTIVITAMINS [Concomitant]
     Active Substance: VITAMINS
  2. DELSYM [Suspect]
     Active Substance: DEXTROMETHORPHAN
     Indication: ANTITUSSIVE THERAPY

REACTIONS (7)
  - Nausea [None]
  - Dizziness [None]
  - Vision blurred [None]
  - Emotional disorder [None]
  - Confusional state [None]
  - Malaise [None]
  - Paraesthesia [None]

NARRATIVE: CASE EVENT DATE: 20150323
